FAERS Safety Report 26126827 (Version 1)
Quarter: 2025Q4

REPORT INFORMATION
  Report Type: Spontaneous
  Country: JP (occurrence: JP)
  Receive Date: 20251205
  Receipt Date: 20251205
  Transmission Date: 20260117
  Serious: Yes (Other)
  Sender: AMGEN
  Company Number: JP-AMGEN-JPNSP2025197330

PATIENT

DRUGS (4)
  1. LUMAKRAS [Suspect]
     Active Substance: SOTORASIB
     Indication: Off label use
     Dosage: 960 MILLIGRAM
     Route: 048
     Dates: start: 20251001, end: 202511
  2. LUMAKRAS [Suspect]
     Active Substance: SOTORASIB
     Indication: Neuroendocrine carcinoma
  3. PANITUMUMAB [Suspect]
     Active Substance: PANITUMUMAB
     Indication: Neuroendocrine carcinoma
     Dosage: UNK
     Route: 065
     Dates: start: 20251001
  4. PANITUMUMAB [Suspect]
     Active Substance: PANITUMUMAB
     Indication: Off label use

REACTIONS (2)
  - Neuroendocrine carcinoma [Unknown]
  - Off label use [Unknown]

NARRATIVE: CASE EVENT DATE: 20251001
